FAERS Safety Report 10675981 (Version 2)
Quarter: 2015Q1

REPORT INFORMATION
  Report Type: Report from Study
  Country: BR (occurrence: BR)
  Receive Date: 20141225
  Receipt Date: 20150112
  Transmission Date: 20150720
  Serious: Yes (Other)
  Sender: FDA-Public Use
  Company Number: BR-SA-2014SA173819

PATIENT
  Age: 67 Year
  Sex: Male

DRUGS (1)
  1. LANTUS [Suspect]
     Active Substance: INSULIN GLARGINE
     Indication: DIABETES MELLITUS
     Dosage: 3 ML CARTRIDGE
     Route: 058
     Dates: start: 2005

REACTIONS (1)
  - Congenital cystic kidney disease [Unknown]

NARRATIVE: CASE EVENT DATE: 2010
